FAERS Safety Report 4625019-7 (Version None)
Quarter: 2005Q1

REPORT INFORMATION
  Report Type: 
  Country: None (occurrence: None)
  Receive Date: 20050329
  Receipt Date: 20050329
  Transmission Date: 20050727
  Serious: Yes (Death, Life-Threatening, Hospitalization)
  Sender: FDA-Public Use
  Company Number: None

PATIENT
  Age: 47 Year
  Sex: Male
  Weight: 86.1834 kg

DRUGS (3)
  1. SOLU-MEDROL [Suspect]
     Indication: SEPTIC SHOCK
     Dosage: 500 MG IV JAN-FEB 2005
     Dates: start: 20050107, end: 20050220
  2. IMMUNE GLOBULIN (HUMAN) [Suspect]
     Indication: COMA
  3. IMMUNE GLOBULIN (HUMAN) [Suspect]
     Indication: SEPSIS

REACTIONS (9)
  - GENERALISED OEDEMA [None]
  - IMMUNOSUPPRESSION [None]
  - MEDICATION ERROR [None]
  - OVERDOSE [None]
  - POOR PERIPHERAL CIRCULATION [None]
  - RENAL FAILURE ACUTE [None]
  - RESPIRATORY DISTRESS [None]
  - SKIN DISCOLOURATION [None]
  - TACHYCARDIA [None]
